FAERS Safety Report 6955399-9 (Version None)
Quarter: 2010Q3

REPORT INFORMATION
  Report Type: 
  Country: None (occurrence: None)
  Receive Date: 20100830
  Receipt Date: 20100608
  Transmission Date: 20110219
  Serious: Yes (Hospitalization)
  Sender: FDA-Public Use
  Company Number: US-BRISTOL-MYERS SQUIBB COMPANY-15139785

PATIENT

DRUGS (2)
  1. SINEMET [Suspect]
  2. ZYVOX [Concomitant]

REACTIONS (1)
  - ADVERSE EVENT [None]
